FAERS Safety Report 4282510-3 (Version None)
Quarter: 2004Q1

REPORT INFORMATION
  Report Type: 
  Country: None (occurrence: None)
  Receive Date: 20040129
  Receipt Date: 20040117
  Transmission Date: 20041129
  Serious: Yes (Disabling, Other)
  Sender: FDA-Public Use
  Company Number: 2003119698

PATIENT
  Age: 73 Year
  Sex: Female
  Weight: 90.7194 kg

DRUGS (7)
  1. NEURONTIN [Suspect]
     Indication: BACK PAIN
     Dosage: 600 MG, ORAL
     Route: 048
     Dates: start: 20030201
  2. FELDENE [Concomitant]
  3. LIPITOR [Concomitant]
  4. LISINOPRIL [Concomitant]
  5. VERAPAMIL [Concomitant]
  6. FUROSEMIDE [Concomitant]
  7. POTASSIUM (POTASSIUM) [Concomitant]

REACTIONS (4)
  - BODY HEIGHT DECREASED [None]
  - CATARACT [None]
  - CHOROIDAL NEOVASCULARISATION [None]
  - SOMNOLENCE [None]
